FAERS Safety Report 8093529-9 (Version None)
Quarter: 2012Q1

REPORT INFORMATION
  Report Type: 
  Country: None (occurrence: None)
  Receive Date: 20120129
  Receipt Date: 20111017
  Transmission Date: 20120608
  Serious: No
  Sender: FDA-Public Use
  Company Number: US-ABBOTT-11P-163-0865695-00

PATIENT
  Age: 59 Year
  Sex: Male

DRUGS (4)
  1. XANAX [Concomitant]
     Indication: BLOOD PRESSURE
     Dosage: 1/2 PILL, TWICE DAILY
  2. XANAX [Concomitant]
     Indication: STRESS
  3. HUMIRA [Suspect]
     Indication: PSORIASIS
     Dates: start: 20090101
  4. LISINOPRIL [Concomitant]
     Indication: BLOOD PRESSURE

REACTIONS (2)
  - EXCORIATION [None]
  - STRESS [None]
